FAERS Safety Report 22230198 (Version 1)
Quarter: 2023Q2

REPORT INFORMATION
  Report Type: Spontaneous
  Country: US (occurrence: US)
  Receive Date: 20230419
  Receipt Date: 20230419
  Transmission Date: 20230722
  Serious: No
  Sender: FDA-Public Use
  Company Number: US-BAUSCH-BL-2023-005958

PATIENT
  Age: 75 Year
  Sex: Male

DRUGS (3)
  1. TARGRETIN [Suspect]
     Active Substance: BEXAROTENE
     Indication: Cutaneous T-cell lymphoma
     Route: 048
  2. TARGRETIN [Suspect]
     Active Substance: BEXAROTENE
     Route: 048
  3. SYNTHROID [Concomitant]
     Active Substance: LEVOTHYROXINE SODIUM
     Indication: Product used for unknown indication

REACTIONS (3)
  - Fatigue [Recovered/Resolved]
  - Blood cholesterol increased [Unknown]
  - Blood triglycerides increased [Unknown]
